FAERS Safety Report 22644084 (Version 1)
Quarter: 2023Q2

REPORT INFORMATION
  Report Type: Spontaneous
  Country: US (occurrence: US)
  Receive Date: 20230627
  Receipt Date: 20230627
  Transmission Date: 20230722
  Serious: Yes (Other)
  Sender: FDA-Public Use
  Company Number: US-002147023-NVSC2023US144565

PATIENT
  Sex: Male

DRUGS (1)
  1. ENTRESTO [Suspect]
     Active Substance: SACUBITRIL\VALSARTAN
     Indication: Product used for unknown indication
     Dosage: 1 DOSAGE FORM, BID (24/26 MG)
     Route: 065

REACTIONS (8)
  - Renal disorder [Unknown]
  - Liver disorder [Unknown]
  - Rhinorrhoea [Unknown]
  - Gynaecomastia [Unknown]
  - Breast swelling [Unknown]
  - Breast pain [Unknown]
  - Nipple swelling [Unknown]
  - Nipple pain [Unknown]
